FAERS Safety Report 7608844-X (Version None)
Quarter: 2011Q3

REPORT INFORMATION
  Report Type: 
  Country: None (occurrence: None)
  Receive Date: 20110714
  Receipt Date: 20110703
  Transmission Date: 20111222
  Serious: Yes (Death)
  Sender: FDA-Public Use
  Company Number: PR-BAXTER-2011BH022515

PATIENT

DRUGS (7)
  1. CYCLOPHOSPHAMIDE [Suspect]
     Indication: NON-HODGKIN'S LYMPHOMA
     Route: 065
  2. FILGRASTIM [Suspect]
     Indication: BONE MARROW CONDITIONING REGIMEN
     Route: 058
  3. DOXORUBICIN HCL [Suspect]
     Indication: NON-HODGKIN'S LYMPHOMA
     Route: 065
  4. VINCRISTINE SULFATE [Suspect]
     Indication: NON-HODGKIN'S LYMPHOMA
     Route: 065
  5. RITUXIMAB [Suspect]
     Indication: NON-HODGKIN'S LYMPHOMA
     Route: 065
  6. PREDNISONE [Suspect]
     Indication: NON-HODGKIN'S LYMPHOMA
     Route: 065
  7. GM-CSF [Suspect]
     Indication: BONE MARROW CONDITIONING REGIMEN
     Route: 065

REACTIONS (1)
  - DEATH [None]
